FAERS Safety Report 4647001-6 (Version None)
Quarter: 2005Q2

REPORT INFORMATION
  Report Type: 
  Country: None (occurrence: None)
  Receive Date: 20050331
  Receipt Date: 20050208
  Transmission Date: 20051028
  Serious: No
  Sender: FDA-Public Use
  Company Number: 05P-163-0289872

PATIENT
  Age: 58 Year
  Sex: Male

DRUGS (3)
  1. HUMIRA [Suspect]
     Indication: RHEUMATOID ARTHRITIS
     Dosage: 40 MG, 1 IN 2 WK, SUBCUTANEOUS
     Route: 058
     Dates: start: 20040101, end: 20050201
  2. HYDROCODONE BITARTRATE [Concomitant]
  3. NAPROXEN [Concomitant]

REACTIONS (5)
  - DIZZINESS [None]
  - FLATULENCE [None]
  - HEADACHE [None]
  - SOMNOLENCE [None]
  - VISUAL ACUITY REDUCED [None]
